FAERS Safety Report 8157494 (Version 4)
Quarter: 2013Q1

REPORT INFORMATION
  Report Type: Spontaneous
  Country: US (occurrence: US)
  Receive Date: 20110927
  Receipt Date: 20130215
  Transmission Date: 20140127
  Serious: Yes (Other)
  Sender: FDA-Public Use
  Company Number: US-ASTRAZENECA-2011SE12480

PATIENT
  Age: 32 Year
  Sex: Male
  Weight: 118.8 kg

DRUGS (9)
  1. SEROQUEL [Suspect]
     Dosage: 50 TO 100 MG
     Route: 048
     Dates: start: 20021022
  2. SEROQUEL [Suspect]
     Route: 048
     Dates: start: 20100420
  3. METHADONE HCL [Concomitant]
     Dates: start: 20100415
  4. HYDROCODONE-ACETOAMINOP [Concomitant]
     Dates: start: 20100415
  5. CYPROHEPTADINE HCL [Concomitant]
     Dates: start: 20100420
  6. ZOLPIDEM TARTRATE [Concomitant]
     Dates: start: 20100420
  7. CYMBALTA [Concomitant]
     Route: 065
     Dates: start: 20100420
  8. TRAMADOL HCL [Concomitant]
     Route: 065
     Dates: start: 20100430
  9. CEPHALEXIN [Concomitant]
     Dates: start: 20100430

REACTIONS (3)
  - Pancreatitis [Unknown]
  - Diabetic coma [Unknown]
  - Type 2 diabetes mellitus [Unknown]
